FAERS Safety Report 24120710 (Version 1)
Quarter: 2024Q3

REPORT INFORMATION
  Report Type: Spontaneous
  Country: CN (occurrence: CN)
  Receive Date: 20240722
  Receipt Date: 20240722
  Transmission Date: 20241017
  Serious: Yes (Hospitalization)
  Sender: B BRAUN
  Company Number: CN-B.Braun Medical Inc.-2159331

PATIENT
  Age: 48 Year
  Sex: Female
  Weight: 55 kg

DRUGS (1)
  1. NUTRILIPID I.V. FAT EMULSION [Suspect]
     Active Substance: SOYBEAN OIL
     Indication: Nutritional supplementation

REACTIONS (2)
  - Back pain [Recovering/Resolving]
  - Hypoaesthesia oral [Recovering/Resolving]
